FAERS Safety Report 11126209 (Version 1)
Quarter: 2015Q2

REPORT INFORMATION
  Report Type: Report from Study
  Country: US (occurrence: US)
  Receive Date: 20150520
  Receipt Date: 20150520
  Transmission Date: 20150821
  Serious: Yes (Other)
  Sender: FDA-Public Use
  Company Number: US-BAXTER-2015BAX025834

PATIENT

DRUGS (3)
  1. CYTOXAN [Suspect]
     Active Substance: CYCLOPHOSPHAMIDE
     Indication: PRODUCT USED FOR UNKNOWN INDICATION
     Dosage: DAYS 1 THROUGH 3
     Route: 042
     Dates: start: 20110614, end: 20110901
  2. RITUXIMAB [Suspect]
     Active Substance: RITUXIMAB
     Indication: PRODUCT USED FOR UNKNOWN INDICATION
     Dosage: 100 MG/10 ML; ON DAY 1
     Route: 042
     Dates: start: 20110614, end: 20111010
  3. FLUDARABINE [Suspect]
     Active Substance: FLUDARABINE PHOSPHATE
     Indication: PRODUCT USED FOR UNKNOWN INDICATION
     Dosage: ON DAYS 1 THROUGH 3
     Route: 042
     Dates: start: 20110614, end: 20110901

REACTIONS (2)
  - Fall [Unknown]
  - Hip fracture [Unknown]
